FAERS Safety Report 7986006-4 (Version None)
Quarter: 2011Q4

REPORT INFORMATION
  Report Type: 
  Country: None (occurrence: None)
  Receive Date: 20111216
  Receipt Date: 20111214
  Transmission Date: 20120403
  Serious: No
  Sender: FDA-Public Use
  Company Number: US-TEVA-313787USA

PATIENT
  Sex: Female
  Weight: 51.302 kg

DRUGS (4)
  1. PLAN B ONE-STEP [Suspect]
     Indication: POST COITAL CONTRACEPTION
     Dosage: 1.5 MILLIGRAM;
     Route: 048
     Dates: start: 20111205, end: 20111205
  2. TOPROL-XL [Concomitant]
     Indication: HYPERTENSION
     Dosage: 100 MILLIGRAM;
     Route: 048
     Dates: start: 20070101
  3. HYDROCHLOROTHIAZIDE [Concomitant]
     Indication: HYPERTENSION
     Dosage: 25 MILLIGRAM;
     Route: 048
     Dates: start: 20070101
  4. ASPIRIN [Concomitant]
     Indication: HYPERTENSION
     Dosage: 81 MILLIGRAM;
     Route: 048
     Dates: start: 20070101

REACTIONS (1)
  - MENSTRUATION IRREGULAR [None]
